FAERS Safety Report 4510603-1 (Version None)
Quarter: 2004Q4

REPORT INFORMATION
  Report Type: 
  Country: None (occurrence: None)
  Receive Date: 20041119
  Receipt Date: 20041108
  Transmission Date: 20050328
  Serious: Yes (Hospitalization, Other)
  Sender: FDA-Public Use
  Company Number: HQWYE702611OCT04

PATIENT
  Age: 49 Year
  Sex: Female

DRUGS (16)
  1. EFECTIN ER (VENLAFAXINE HYDROCHLORIDE EXTENDED RELEASE) [Suspect]
     Indication: DEPRESSION
     Dosage: SEE IMAGE
     Route: 048
     Dates: start: 20040826, end: 20040829
  2. EFECTIN ER (VENLAFAXINE HYDROCHLORIDE EXTENDED RELEASE) [Suspect]
     Indication: PANIC DISORDER
     Dosage: SEE IMAGE
     Route: 048
     Dates: start: 20040826, end: 20040829
  3. EFECTIN ER (VENLAFAXINE HYDROCHLORIDE EXTENDED RELEASE) [Suspect]
     Indication: DEPRESSION
     Dosage: SEE IMAGE
     Route: 048
     Dates: start: 20040830, end: 20040831
  4. EFECTIN ER (VENLAFAXINE HYDROCHLORIDE EXTENDED RELEASE) [Suspect]
     Indication: PANIC DISORDER
     Dosage: SEE IMAGE
     Route: 048
     Dates: start: 20040830, end: 20040831
  5. EFECTIN ER (VENLAFAXINE HYDROCHLORIDE EXTENDED RELEASE) [Suspect]
     Indication: DEPRESSION
     Dosage: SEE IMAGE
     Route: 048
     Dates: start: 20040903, end: 20040912
  6. EFECTIN ER (VENLAFAXINE HYDROCHLORIDE EXTENDED RELEASE) [Suspect]
     Indication: PANIC DISORDER
     Dosage: SEE IMAGE
     Route: 048
     Dates: start: 20040903, end: 20040912
  7. EFECTIN ER (VENLAFAXINE HYDROCHLORIDE EXTENDED RELEASE) [Suspect]
     Indication: DEPRESSION
     Dosage: SEE IMAGE
     Route: 048
     Dates: start: 20040913, end: 20040915
  8. EFECTIN ER (VENLAFAXINE HYDROCHLORIDE EXTENDED RELEASE) [Suspect]
     Indication: PANIC DISORDER
     Dosage: SEE IMAGE
     Route: 048
     Dates: start: 20040913, end: 20040915
  9. EFECTIN ER (VENLAFAXINE HYDROCHLORIDE EXTENDED RELEASE) [Suspect]
     Indication: DEPRESSION
     Dosage: SEE IMAGE
     Route: 048
     Dates: start: 20040916, end: 20040917
  10. EFECTIN ER (VENLAFAXINE HYDROCHLORIDE EXTENDED RELEASE) [Suspect]
     Indication: PANIC DISORDER
     Dosage: SEE IMAGE
     Route: 048
     Dates: start: 20040916, end: 20040917
  11. MIRTABENE (MIRTAZAPINE,) [Suspect]
     Dosage: SEE IMAGE
     Route: 048
     Dates: start: 20040805, end: 20040811
  12. MIRTABENE (MIRTAZAPINE,) [Suspect]
     Dosage: SEE IMAGE
     Route: 048
     Dates: start: 20040812, end: 20040814
  13. MIRTABENE (MIRTAZAPINE,) [Suspect]
     Dosage: SEE IMAGE
     Route: 048
     Dates: start: 20040815, end: 20040817
  14. MIRTABENE (MIRTAZAPINE,) [Suspect]
     Dosage: SEE IMAGE
     Route: 048
     Dates: start: 20040818
  15. DOMINAL (PROTHIPENDYL HYDROCHLORIDE) [Concomitant]
  16. XANOR (ALPRZOLAM) [Concomitant]

REACTIONS (6)
  - DEREALISATION [None]
  - DRUG DEPENDENCE [None]
  - DRUG INTERACTION [None]
  - DRUG LEVEL DECREASED [None]
  - DRUG LEVEL INCREASED [None]
  - PSYCHIATRIC SYMPTOM [None]
